FAERS Safety Report 20724254 (Version 2)
Quarter: 2022Q4

REPORT INFORMATION
  Report Type: Spontaneous
  Country: US (occurrence: US)
  Receive Date: 20220419
  Receipt Date: 20221020
  Transmission Date: 20230113
  Serious: Yes (Death, Other)
  Sender: FDA-Public Use
  Company Number: US-ALLERGAN-2212853US

PATIENT
  Sex: Female
  Weight: 82.553 kg

DRUGS (1)
  1. VRAYLAR [Suspect]
     Active Substance: CARIPRAZINE
     Indication: Schizophrenia
     Dosage: 1.5 MG, QD
     Route: 048

REACTIONS (3)
  - End stage renal disease [Fatal]
  - General physical health deterioration [Fatal]
  - Fatigue [Fatal]
